FAERS Safety Report 4832102-X (Version None)
Quarter: 2005Q4

REPORT INFORMATION
  Report Type: 
  Country: None (occurrence: None)
  Receive Date: 20051116
  Receipt Date: 20051103
  Transmission Date: 20060501
  Serious: Yes (Other)
  Sender: FDA-Public Use
  Company Number: 2005US001605

PATIENT
  Age: 13 Year
  Sex: Female

DRUGS (1)
  1. AMBISOME [Suspect]
     Indication: SYSTEMIC CANDIDA
     Dosage: SEE IMAGE

REACTIONS (1)
  - DIABETES INSIPIDUS [None]
